FAERS Safety Report 8827595 (Version 1)
Quarter: 2012Q4

REPORT INFORMATION
  Report Type: 
  Country: US (occurrence: US)
  Receive Date: 20121005
  Receipt Date: 20121005
  Transmission Date: 20130627
  Serious: Yes (Other)
  Sender: FDA-Public Use
  Company Number: US-B.I. PHARMACEUTICALS,INC./RIDGEFIELD-2012-BP-23643BP

PATIENT
  Age: 71 None
  Sex: Female
  Weight: 40 kg

DRUGS (7)
  1. SPIRIVA [Suspect]
     Indication: CHRONIC OBSTRUCTIVE PULMONARY DISEASE
     Dosage: 18 mcg
     Route: 055
     Dates: start: 2006
  2. SPIRIVA [Suspect]
     Dosage: 18 mcg
     Route: 048
     Dates: start: 20120927, end: 20120927
  3. ADVAIR [Concomitant]
     Indication: CHRONIC OBSTRUCTIVE PULMONARY DISEASE
     Route: 055
     Dates: start: 2006
  4. XOPENEX [Concomitant]
     Indication: CHRONIC OBSTRUCTIVE PULMONARY DISEASE
     Dosage: 50 mg
     Route: 055
     Dates: start: 2006
  5. XANAX [Concomitant]
     Indication: ANXIETY
     Route: 048
     Dates: start: 2002
  6. LEXAPRO [Concomitant]
     Indication: ANTIDEPRESSANT THERAPY
     Dosage: 15 mg
     Route: 048
     Dates: start: 2006
  7. CIPRO [Concomitant]

REACTIONS (12)
  - Lung neoplasm malignant [Recovered/Resolved]
  - Hypertension [Not Recovered/Not Resolved]
  - Gastrooesophageal reflux disease [Not Recovered/Not Resolved]
  - Sleep disorder [Not Recovered/Not Resolved]
  - Hypersensitivity [Not Recovered/Not Resolved]
  - Anticoagulant therapy [Not Recovered/Not Resolved]
  - Back pain [Not Recovered/Not Resolved]
  - Spinal deformity [Not Recovered/Not Resolved]
  - Chronic obstructive pulmonary disease [Not Recovered/Not Resolved]
  - Bacterial infection [Not Recovered/Not Resolved]
  - Lung infection [Not Recovered/Not Resolved]
  - Incorrect route of drug administration [Recovered/Resolved]
